FAERS Safety Report 22099753 (Version 2)
Quarter: 2023Q1

REPORT INFORMATION
  Report Type: Spontaneous
  Country: HR (occurrence: HR)
  Receive Date: 20230315
  Receipt Date: 20230317
  Transmission Date: 20230418
  Serious: Yes (Other)
  Sender: FDA-Public Use
  Company Number: HR-ABBVIE-4340711

PATIENT
  Age: 62 Year
  Sex: Male

DRUGS (2)
  1. VENETOCLAX [Suspect]
     Active Substance: VENETOCLAX
     Indication: Chronic lymphocytic leukaemia
     Route: 048
     Dates: start: 20220518
  2. OBINUTUZUMAB [Concomitant]
     Active Substance: OBINUTUZUMAB
     Indication: Product used for unknown indication
     Route: 065
     Dates: start: 20220518, end: 20220518

REACTIONS (6)
  - Infusion related reaction [Unknown]
  - Cyanosis [Unknown]
  - Body temperature increased [Unknown]
  - Vision blurred [Unknown]
  - Blood pressure decreased [Unknown]
  - Amnesia [Unknown]

NARRATIVE: CASE EVENT DATE: 20220518
